FAERS Safety Report 13280802 (Version 2)
Quarter: 2017Q1

REPORT INFORMATION
  Report Type: Spontaneous
  Country: US (occurrence: US)
  Receive Date: 20170301
  Receipt Date: 20170302
  Transmission Date: 20170428
  Serious: No
  Sender: FDA-Public Use
  Company Number: US-INSYS THERAPEUTICS, INC-INS201604-000176

PATIENT
  Sex: Male
  Weight: 83.91 kg

DRUGS (2)
  1. SUBSYS [Suspect]
     Active Substance: FENTANYL
     Indication: BREAKTHROUGH PAIN
     Route: 060
     Dates: start: 20160329, end: 20160415
  2. SUBSYS [Suspect]
     Active Substance: FENTANYL
     Indication: LUNG NEOPLASM MALIGNANT

REACTIONS (4)
  - Drug effect incomplete [Unknown]
  - Dizziness [Unknown]
  - Nausea [Unknown]
  - Abdominal pain upper [Unknown]
